FAERS Safety Report 7237365-1 (Version None)
Quarter: 2011Q1

REPORT INFORMATION
  Report Type: 
  Country: None (occurrence: None)
  Receive Date: 20110121
  Receipt Date: 20110114
  Transmission Date: 20110831
  Serious: Yes (Hospitalization)
  Sender: FDA-Public Use
  Company Number: KR-BRISTOL-MYERS SQUIBB COMPANY-15482979

PATIENT
  Age: 56 Year
  Sex: Male

DRUGS (2)
  1. CLEXANE [Suspect]
     Indication: ANTICOAGULANT THERAPY
     Route: 058
  2. WARFARIN SODIUM [Suspect]
     Indication: ANTICOAGULANT THERAPY
     Route: 048

REACTIONS (2)
  - DEEP VEIN THROMBOSIS [None]
  - PENILE NECROSIS [None]
